FAERS Safety Report 4633871-4 (Version None)
Quarter: 2005Q2

REPORT INFORMATION
  Report Type: 
  Country: None (occurrence: None)
  Receive Date: 20050412
  Receipt Date: 20050412
  Transmission Date: 20051028
  Serious: No
  Sender: FDA-Public Use
  Company Number: None

PATIENT
  Sex: Female
  Weight: 14 kg

DRUGS (5)
  1. VINCRISTINE [Suspect]
     Indication: ACUTE LYMPHOCYTIC LEUKAEMIA
     Dosage: 1.5 MG/M2 IV
     Route: 042
     Dates: start: 20050106
  2. PEG-ASPARAGINASE [Suspect]
     Dosage: 2500 IU/M2 IM
     Route: 030
  3. BACTRIM [Concomitant]
  4. VORICONAZOLE [Concomitant]
  5. ZANTAC [Concomitant]

REACTIONS (4)
  - BLOOD PRESSURE DECREASED [None]
  - COUGH [None]
  - HYPOXIA [None]
  - URTICARIA GENERALISED [None]
